FAERS Safety Report 9494230 (Version 3)
Quarter: 2013Q3

REPORT INFORMATION
  Report Type: Spontaneous
  Country: US (occurrence: None)
  Receive Date: 20130828
  Receipt Date: 20130918
  Transmission Date: 20140515
  Serious: Yes (Hospitalization)
  Sender: FDA-Public Use
  Company Number: 2013SGN00497

PATIENT
  Age: 31 Year
  Sex: Male

DRUGS (7)
  1. BRENTUXIMAB VEDOTIN [Suspect]
     Indication: HODGKIN^S DISEASE
     Route: 042
     Dates: start: 20130613, end: 20130725
  2. IFOSFAMIDE [Suspect]
     Indication: HODGKIN^S DISEASE
     Dates: start: 20130802, end: 20130804
  3. MESNA [Suspect]
     Indication: HODGKIN^S DISEASE
     Dates: start: 20130802, end: 20130804
  4. CARBOPLATIN [Suspect]
     Indication: HODGKIN^S DISEASE
     Dates: start: 20130802, end: 20130804
  5. ETOPOSIDE (ETOPOSIDE PHOSPHATE) [Suspect]
     Indication: HODGKIN^S DISEASE
     Dates: start: 20130802, end: 20130804
  6. NEULASTA [Concomitant]
  7. LEVAQUIN (LEVOFLOXACIN) [Concomitant]

REACTIONS (6)
  - Febrile neutropenia [None]
  - Cough [None]
  - Rhinorrhoea [None]
  - Night sweats [None]
  - White blood cell count decreased [None]
  - Bacterial translocation [None]
